FAERS Safety Report 5425043-0 (Version None)
Quarter: 2007Q3

REPORT INFORMATION
  Report Type: 
  Country: None (occurrence: None)
  Receive Date: 20070726
  Receipt Date: 20070618
  Transmission Date: 20080115
  Serious: Yes (Hospitalization)
  Sender: FDA-Public Use
  Company Number: POMP-11100

PATIENT
  Age: 29 Week
  Sex: Female
  Weight: 6.75 kg

DRUGS (1)
  1. MYOZYME [Suspect]
     Indication: GLYCOGEN STORAGE DISEASE TYPE II
     Dosage: 150 MG Q2WKS; IV
     Route: 042
     Dates: start: 20070419

REACTIONS (2)
  - BLOOD PRESSURE DECREASED [None]
  - PNEUMONIA [None]
